FAERS Safety Report 6370102-1 (Version None)
Quarter: 2009Q3

REPORT INFORMATION
  Report Type: 
  Country: None (occurrence: None)
  Receive Date: 20090923
  Receipt Date: 20071112
  Transmission Date: 20100115
  Serious: Yes (Hospitalization)
  Sender: FDA-Public Use
  Company Number: US-ASTRAZENECA-2006UW21741

PATIENT
  Age: 18096 Day
  Sex: Female
  Weight: 84.4 kg

DRUGS (14)
  1. SEROQUEL [Suspect]
     Indication: DEPRESSION
     Route: 048
     Dates: start: 20000101
  2. SEROQUEL [Suspect]
     Indication: BIPOLAR DISORDER
     Route: 048
     Dates: start: 20000101
  3. SEROQUEL [Suspect]
     Indication: SLEEP DISORDER
     Route: 048
     Dates: start: 20000101
  4. SEROQUEL [Suspect]
     Dosage: 25 MG ONE - TWO AT NIGHT
     Route: 048
     Dates: start: 20030105
  5. SEROQUEL [Suspect]
     Dosage: 25 MG ONE - TWO AT NIGHT
     Route: 048
     Dates: start: 20030105
  6. SEROQUEL [Suspect]
     Dosage: 25 MG ONE - TWO AT NIGHT
     Route: 048
     Dates: start: 20030105
  7. MIRTAZAPINE [Concomitant]
     Dates: start: 20060101
  8. DEPAKOTE [Concomitant]
     Indication: BIPOLAR DISORDER
     Dosage: 250 MG - 200 MG
     Route: 048
     Dates: start: 20010911
  9. TRAZODONE [Concomitant]
     Dosage: 50 MG TWO TABLETS AT BEDTIME
     Route: 048
     Dates: start: 20010911
  10. ZOLOFT [Concomitant]
     Indication: SOMATISATION DISORDER
     Dosage: 25 MG - 100 MG
     Dates: start: 20010911
  11. ZOLOFT [Concomitant]
     Indication: ABDOMINAL PAIN
     Dosage: 25 MG - 100 MG
     Dates: start: 20010911
  12. ZOLOFT [Concomitant]
     Indication: HEADACHE
     Dosage: 25 MG - 100 MG
     Dates: start: 20010911
  13. HYDROCHLOROTHIAZIDE [Concomitant]
     Route: 048
     Dates: start: 19980320
  14. PRILOSEC [Concomitant]
     Route: 048
     Dates: start: 19980402

REACTIONS (2)
  - BLOOD CHOLESTEROL INCREASED [None]
  - PANCREATITIS [None]
